FAERS Safety Report 7816192-8 (Version None)
Quarter: 2011Q4

REPORT INFORMATION
  Report Type: 
  Country: None (occurrence: None)
  Receive Date: 20111015
  Receipt Date: 20111004
  Transmission Date: 20120403
  Serious: Yes (Life-Threatening, Hospitalization)
  Sender: FDA-Public Use
  Company Number: CA-ROCHE-1003304

PATIENT
  Sex: Female

DRUGS (5)
  1. XOLAIR [Suspect]
     Indication: ASTHMA
     Route: 058
     Dates: start: 20100625
  2. ALVESCO [Concomitant]
  3. VENTOLIN [Concomitant]
  4. SPIRIVA [Concomitant]
  5. SINGULAIR [Concomitant]

REACTIONS (1)
  - MYOCARDIAL INFARCTION [None]
